FAERS Safety Report 17553350 (Version 1)
Quarter: 2020Q1

REPORT INFORMATION
  Report Type: Spontaneous
  Country: GB (occurrence: GB)
  Receive Date: 20200317
  Receipt Date: 20200317
  Transmission Date: 20200409
  Serious: Yes (Other)
  Sender: FDA-Public Use
  Company Number: GB-JNJFOC-20200309536

PATIENT
  Age: 65 Year
  Sex: Male
  Weight: 99 kg

DRUGS (1)
  1. STELARA [Suspect]
     Active Substance: USTEKINUMAB
     Indication: CROHN^S DISEASE
     Route: 042
     Dates: start: 20191211, end: 20191211

REACTIONS (7)
  - Hallucination [Recovered/Resolved with Sequelae]
  - Fatigue [Unknown]
  - Limb discomfort [Unknown]
  - Flashback [Recovered/Resolved with Sequelae]
  - Headache [Unknown]
  - Visual impairment [Recovered/Resolved with Sequelae]
  - Neck pain [Unknown]

NARRATIVE: CASE EVENT DATE: 20191211
